FAERS Safety Report 16784981 (Version 2)
Quarter: 2020Q3

REPORT INFORMATION
  Report Type: Spontaneous
  Country: US (occurrence: US)
  Receive Date: 20190909
  Receipt Date: 20200909
  Transmission Date: 20201102
  Serious: Yes (Hospitalization, Other)
  Sender: FDA-Public Use
  Company Number: US-SUN PHARMACEUTICAL INDUSTRIES LTD-2019R1-219706

PATIENT
  Age: 23 Month
  Sex: Female
  Weight: 15 kg

DRUGS (1)
  1. CLONIDINE. [Suspect]
     Active Substance: CLONIDINE
     Indication: PRODUCT USED FOR UNKNOWN INDICATION
     Dosage: FOUND WITH AN OPEN BOTTLE OF CLONIDINE 0.1 MG AND 8 TABLETS MISSING
     Route: 065

REACTIONS (8)
  - Pulse absent [Recovered/Resolved]
  - Depressed level of consciousness [Recovered/Resolved]
  - Apnoeic attack [Recovered/Resolved]
  - Overdose [Recovered/Resolved]
  - Bradycardia [Recovered/Resolved]
  - Lethargy [Recovered/Resolved]
  - Unresponsive to stimuli [Recovered/Resolved]
  - Mental status changes [Recovered/Resolved]
